FAERS Safety Report 23588555 (Version 1)
Quarter: 2024Q1

REPORT INFORMATION
  Report Type: Report from Study
  Country: CA (occurrence: CA)
  Receive Date: 20240302
  Receipt Date: 20240302
  Transmission Date: 20240409
  Serious: Yes (Other)
  Sender: FDA-Public Use
  Company Number: None

PATIENT
  Sex: Female

DRUGS (6)
  1. MYCOPHENOLATE MOFETIL [Suspect]
     Active Substance: MYCOPHENOLATE MOFETIL
     Indication: Product used for unknown indication
     Route: 065
  2. ACTEMRA [Suspect]
     Active Substance: TOCILIZUMAB
     Indication: Uveitis
     Route: 058
  3. LUMIGAN [Concomitant]
     Active Substance: BIMATOPROST
     Dosage: SOLUTION OPHTHALMIC
  4. PREDNISOLONE [Concomitant]
     Active Substance: PREDNISOLONE
  5. BROMFENAC SODIUM [Concomitant]
     Active Substance: BROMFENAC SODIUM
     Dosage: SOLUTION OPHTHALMIC
  6. TIMOLOL [Concomitant]
     Active Substance: TIMOLOL

REACTIONS (1)
  - Macular oedema [Recovering/Resolving]
